FAERS Safety Report 5387980-5 (Version None)
Quarter: 2007Q3

REPORT INFORMATION
  Report Type: 
  Country: None (occurrence: None)
  Receive Date: 20070716
  Receipt Date: 20061018
  Transmission Date: 20080115
  Serious: No
  Sender: FDA-Public Use
  Company Number: A0623868A

PATIENT
  Age: 40 Year
  Sex: Female

DRUGS (1)
  1. NICORETTE [Suspect]

REACTIONS (4)
  - DRY MOUTH [None]
  - MOUTH ULCERATION [None]
  - ORAL MUCOSAL BLISTERING [None]
  - SWOLLEN TONGUE [None]
